FAERS Safety Report 5168393-8 (Version None)
Quarter: 2006Q4

REPORT INFORMATION
  Report Type: 
  Country: None (occurrence: None)
  Receive Date: 20061208
  Receipt Date: 20061128
  Transmission Date: 20070319
  Serious: Yes (Hospitalization)
  Sender: FDA-Public Use
  Company Number: GB-ROCHE-473141

PATIENT
  Age: 56 Year
  Sex: Male

DRUGS (5)
  1. MYCOPHENOLATE MOFETIL [Suspect]
     Indication: HEART TRANSPLANT
     Route: 065
     Dates: start: 20040201
  2. CYCLOSPORINE [Suspect]
     Indication: HEART TRANSPLANT
     Route: 065
     Dates: start: 20040201
  3. CYCLOSPORINE [Suspect]
     Dosage: DOSE REDUCED.
     Route: 065
  4. PREDNISOLONE [Suspect]
     Indication: HEART TRANSPLANT
     Route: 065
     Dates: start: 20040201
  5. PREDNISOLONE [Suspect]
     Dosage: DOSE REDUCED.
     Route: 065

REACTIONS (14)
  - ACINETOBACTER INFECTION [None]
  - CLOSTRIDIUM DIFFICILE COLITIS [None]
  - COAGULOPATHY [None]
  - GRAND MAL CONVULSION [None]
  - HEMIPARESIS [None]
  - MEDIASTINITIS [None]
  - NECROSIS [None]
  - PULMONARY OEDEMA [None]
  - RENAL FAILURE ACUTE [None]
  - RESPIRATORY DISTRESS [None]
  - SEPSIS [None]
  - SURGERY [None]
  - TRACHEOSTOMY [None]
  - WOUND DEBRIDEMENT [None]
